FAERS Safety Report 18643552 (Version 2)
Quarter: 2021Q2

REPORT INFORMATION
  Report Type: Spontaneous
  Country: FR (occurrence: FR)
  Receive Date: 20201221
  Receipt Date: 20210527
  Transmission Date: 20210717
  Serious: Yes (Hospitalization, Other)
  Sender: FDA-Public Use
  Company Number: FR-PFIZER INC-2020495331

PATIENT
  Age: 52 Year
  Sex: Female
  Weight: 61 kg

DRUGS (58)
  1. ESTROGEN [Suspect]
     Active Substance: ESTROGENS
     Dosage: UNK
     Route: 065
  2. CYCLEANE [Suspect]
     Active Substance: DESOGESTREL\ETHINYL ESTRADIOL
     Indication: HYPERANDROGENISM
     Dosage: UNK, 7 DAYS PER MONTH
     Route: 065
     Dates: start: 2000, end: 2004
  3. MIRENA [Suspect]
     Active Substance: LEVONORGESTREL
     Indication: HYPERANDROGENISM
     Dosage: UNK
     Route: 015
     Dates: start: 20040901, end: 20050913
  4. MIRENA [Suspect]
     Active Substance: LEVONORGESTREL
     Dosage: UNK
     Route: 065
     Dates: start: 20040707
  5. ANDROCUR [Suspect]
     Active Substance: CYPROTERONE ACETATE
     Dosage: 1 DF, QD FOR 7 FIRST DAYS OF CYCLEANE; 1 BOX TO REPEAT 6 TIMES
     Route: 065
     Dates: start: 20030611
  6. ANDROCUR [Suspect]
     Active Substance: CYPROTERONE ACETATE
     Dosage: 0.5 DF, OTHER (20 DAYS PER MONTH)
     Dates: start: 201506
  7. PROVAMES [Concomitant]
     Active Substance: ESTRADIOL
     Dosage: 1 DF, 1X/DAY, FOR 10 DAYS
     Dates: start: 19990505
  8. ZOMIG [Concomitant]
     Active Substance: ZOLMITRIPTAN
     Dosage: 1 DF (TO REPEAT 1 HOUR LATER IF NEEDED)
     Dates: start: 20090901
  9. CYCLEANE [Suspect]
     Active Substance: DESOGESTREL\ETHINYL ESTRADIOL
     Dosage: UNK (U1 BOX OF 3 BLISTER PACKS. TO REPEAT 6 TIMES)
     Dates: start: 20040107
  10. ANDROCUR [Suspect]
     Active Substance: CYPROTERONE ACETATE
     Dosage: 0.5 DF, QD FOR 20 DAYS
     Route: 065
     Dates: start: 20070829
  11. ZOMIG [Concomitant]
     Active Substance: ZOLMITRIPTAN
     Dosage: 1 DF FOR MIGRAINE TO REPEAT ONE HOUR LATER IF NEEDED AND 4 TIMES PER 24 HOURS AT MAXIMUM
     Dates: start: 20021030
  12. ZOMIG [Concomitant]
     Active Substance: ZOLMITRIPTAN
     Dosage: MAXIMUM. 1 BOX OF 12. TO REPEAT 6 TIMES
     Dates: start: 20040107
  13. CYCLEANE [Suspect]
     Active Substance: DESOGESTREL\ETHINYL ESTRADIOL
     Dosage: UNK (1 BOX OF 3 BLISTER PACKS. TO REPEAT 3 MONTHS)
     Dates: start: 20000711
  14. ANDROCUR [Suspect]
     Active Substance: CYPROTERONE ACETATE
     Dosage: 0.5 DF, 20 DAYS PER MONTH
     Route: 065
     Dates: start: 200507, end: 201108
  15. ANDROCUR [Suspect]
     Active Substance: CYPROTERONE ACETATE
     Dosage: 0.5 DF, 20 DAYS PER MONTH
     Route: 065
     Dates: end: 201506
  16. DUPHASTON [Concomitant]
     Active Substance: DYDROGESTERONE
     Dosage: 2 DF, 1X/DAY FOR 10 DAYS
     Dates: start: 19990505
  17. ZOMIG [Concomitant]
     Active Substance: ZOLMITRIPTAN
     Dosage: 1 DF (FOR MIGRAINE TO REPEAT ONE HOUR LATER IF NEEDED AND 4 TIMES PER 24 HOURS AT MAXIMUM)
     Dates: start: 20030611
  18. ZOMIG [Concomitant]
     Active Substance: ZOLMITRIPTAN
     Dosage: 1 DF (HOUR LATER IF NEEDED)
     Dates: start: 20060808
  19. CYCLEANE [Suspect]
     Active Substance: DESOGESTREL\ETHINYL ESTRADIOL
     Dosage: UNK (1 BOX OF 3 BLISTER PACKS)
     Dates: start: 20021030
  20. ANDROCUR [Suspect]
     Active Substance: CYPROTERONE ACETATE
     Dosage: 0.5 DF, 1X/DAY
     Route: 065
     Dates: start: 20100816
  21. ANDROCUR [Suspect]
     Active Substance: CYPROTERONE ACETATE
     Dosage: 1 DF, QD FOR 7 FIRST DAYS OF CYCLEANE
     Dates: start: 20040107
  22. ANDROCUR [Suspect]
     Active Substance: CYPROTERONE ACETATE
     Dosage: 1 DF, QD FOR 7 FIRST DAYS OF CYCLEANE
     Dates: start: 20020227
  23. ANDROCUR [Suspect]
     Active Substance: CYPROTERONE ACETATE
     Dosage: 0.5 DF, 1X/DAY
     Route: 065
     Dates: start: 20090901
  24. OROMONE [Suspect]
     Active Substance: ESTRADIOL
     Dosage: 1 DF, 1X/DAY, FOR 20 DAYS
     Route: 065
     Dates: start: 20090901
  25. OROMONE [Suspect]
     Active Substance: ESTRADIOL
     Dosage: 1 DF, 1X/DAY, FOR 20 DAYS
     Route: 065
     Dates: start: 20060808
  26. CYPROTERONE [Suspect]
     Active Substance: CYPROTERONE
     Dosage: 50 MG
     Route: 065
     Dates: start: 20110606
  27. BI PROFENID [Concomitant]
     Active Substance: KETOPROFEN
     Dosage: UNK
  28. MOTILIUM [Concomitant]
     Active Substance: DOMPERIDONE
     Dosage: 1 DF, 3X/DAY
  29. ZOMIG [Concomitant]
     Active Substance: ZOLMITRIPTAN
     Dosage: 1 DF
     Dates: start: 19990213
  30. CYCLEANE [Suspect]
     Active Substance: DESOGESTREL\ETHINYL ESTRADIOL
     Dosage: UNK (1 BOX OF 3 BLISTER PACKS. TO REPEAT 4 TIMES)
     Dates: start: 20020227
  31. OROMONE [Suspect]
     Active Substance: ESTRADIOL
     Dosage: 1 DF, 1X/DAY FOR 20 DAYS
     Route: 065
     Dates: start: 20100816
  32. ZOMIG [Concomitant]
     Active Substance: ZOLMITRIPTAN
     Dosage: 1 DF (TO REPEAT 1 HOUR LATER IF NEEDED)
     Dates: start: 20070829
  33. ZOMIG [Concomitant]
     Active Substance: ZOLMITRIPTAN
     Dosage: 1 DF, 1X/DAY
     Dates: start: 19990318
  34. POLYGYNAX [NEOMYCIN SULFATE;NYSTATIN;POLYMYXIN B SULFATE] [Concomitant]
     Active Substance: NEOMYCIN\NYSTATIN\POLYMYXIN B SULFATE
     Dosage: UNK
  35. CYCLEANE [Suspect]
     Active Substance: DESOGESTREL\ETHINYL ESTRADIOL
     Dosage: UNK (1 BOX OF 3 BLISTER PACKS. TO REPEAT 4 TIMES)
     Dates: start: 20010822
  36. ANDROCUR [Suspect]
     Active Substance: CYPROTERONE ACETATE
     Indication: HYPERANDROGENISM
     Dosage: 0.5 DF (50 MG), 7 DAYS PER MONTH
     Route: 065
     Dates: start: 199806, end: 1999
  37. ANDROCUR [Suspect]
     Active Substance: CYPROTERONE ACETATE
     Dosage: 1 DF, 1X/DAY
     Route: 065
     Dates: start: 20021030
  38. ANDROCUR [Suspect]
     Active Substance: CYPROTERONE ACETATE
     Dosage: 0.5 DF
     Route: 065
     Dates: start: 20060628
  39. OROMONE [Suspect]
     Active Substance: ESTRADIOL
     Indication: HYPERANDROGENISM
     Dosage: 1 MG (7 DAYS PER MONTH)
     Route: 065
     Dates: start: 200507, end: 201108
  40. OROMONE [Suspect]
     Active Substance: ESTRADIOL
     Dosage: 1 DF, QD FOR 20 DAYS (1 BOX OF 12. TO RESUME 6 TIMES)
     Route: 065
     Dates: start: 20070829
  41. CYPROTERONE [Suspect]
     Active Substance: CYPROTERONE
     Indication: HYPERANDROGENISM
     Dosage: UNK
     Route: 065
     Dates: start: 20090615
  42. CYPROTERONE [Suspect]
     Active Substance: CYPROTERONE
     Dosage: 50 MG
     Route: 065
     Dates: start: 20110404
  43. TRINORDIOL [Suspect]
     Active Substance: ETHINYL ESTRADIOL\LEVONORGESTREL
     Dosage: UNK (1 BOX OF 3 BLISTER PACKS)
     Route: 065
     Dates: start: 19980617, end: 19990213
  44. ANDROCUR [Suspect]
     Active Substance: CYPROTERONE ACETATE
     Dosage: UNK (7 DAYS PER MONTH)
     Route: 065
     Dates: start: 2000, end: 2004
  45. ANDROCUR [Suspect]
     Active Substance: CYPROTERONE ACETATE
     Dosage: 0.5 DF, 20 DAYS PER MONTH
     Route: 065
     Dates: start: 20120828, end: 20130826
  46. ANDROCUR [Suspect]
     Active Substance: CYPROTERONE ACETATE
     Dosage: 1 DF, QD (FOR 6 FIRST DAYS OF A CYCLE + INTRAUTERINE DEVICE. 1 BOX. TO REPEAT)
     Route: 065
     Dates: start: 19990213
  47. ANDROCUR [Suspect]
     Active Substance: CYPROTERONE ACETATE
     Dosage: 1 DF, QD FOR 7 FIRST DAYS
     Route: 065
     Dates: start: 20010822
  48. OROMONE [Suspect]
     Active Substance: ESTRADIOL
     Dosage: 1 DF, 1X/DAY FOR 20 DAYS
     Route: 065
     Dates: start: 20050713
  49. OROMONE [Suspect]
     Active Substance: ESTRADIOL
     Dosage: 1 DF, 1X/DAY, FOR 20 DAYS
     Route: 065
     Dates: start: 20060628
  50. CYPROTERONE [Suspect]
     Active Substance: CYPROTERONE
     Dosage: 50 MG
     Route: 065
  51. ZOMIG [Concomitant]
     Active Substance: ZOLMITRIPTAN
     Indication: MIGRAINE
     Dosage: 1 DF FOR MIGRAINE TO REPEAT ONE HOUR LATER IF NEEDED AND 4 TIMES PER 24 HOURS AT MAXIMUM
     Dates: start: 20010822
  52. CYCLEANE [Suspect]
     Active Substance: DESOGESTREL\ETHINYL ESTRADIOL
     Dosage: UNK (1 BOX OF 3 BLISTER PACKS, TO REPEAT 6 TIMES)
     Dates: start: 20030611
  53. ANDROCUR [Suspect]
     Active Substance: CYPROTERONE ACETATE
     Dosage: 0.5 DF, QD FOR 20 DAYS
     Route: 065
     Dates: start: 20060808
  54. ANDROCUR [Suspect]
     Active Substance: CYPROTERONE ACETATE
     Dosage: 1 DF, 1X/DAY
     Route: 065
     Dates: start: 19990723
  55. ANDROCUR [Suspect]
     Active Substance: CYPROTERONE ACETATE
     Dosage: 0.5 DF, QD FOR 20 DAYS
     Dates: start: 20050713
  56. ZOMIG [Concomitant]
     Active Substance: ZOLMITRIPTAN
     Dosage: 1 DF (TO REPEAT 1 HR LATER IF NEEDED)
     Dates: start: 20051006
  57. ZOMIG [Concomitant]
     Active Substance: ZOLMITRIPTAN
     Dosage: 1 DF (TO REPEAT ONE HOUR LATER IF NEEDED AND 4 TIMES PER 24 HOURS AT MAXIMUM)
     Dates: start: 20020227
  58. ZOMIG [Concomitant]
     Active Substance: ZOLMITRIPTAN
     Dosage: 1 DF (TO REPEAT 1 HOUR LATER IF NEEDED)
     Dates: start: 20080919

REACTIONS (31)
  - Headache [Unknown]
  - Hypothermia [Unknown]
  - Pain [Unknown]
  - Skin lesion [Unknown]
  - Pain in extremity [Unknown]
  - Aphasia [Unknown]
  - Facial paralysis [Unknown]
  - Pain of skin [Unknown]
  - Muscle tightness [Unknown]
  - Dysarthria [Unknown]
  - Cognitive disorder [Unknown]
  - Scar [Unknown]
  - Skin depigmentation [Unknown]
  - Post procedural oedema [Unknown]
  - Nausea [Unknown]
  - Fatigue [Unknown]
  - Musculoskeletal stiffness [Unknown]
  - Psychomotor retardation [Unknown]
  - Language disorder [Unknown]
  - Tension headache [Unknown]
  - Epilepsy [Unknown]
  - Seizure [Unknown]
  - Migraine [Unknown]
  - Meningioma [Unknown]
  - Tumour haemorrhage [Unknown]
  - Haematoma [Unknown]
  - Sleep disorder [Unknown]
  - Haemorrhage intracranial [Unknown]
  - Arthralgia [Unknown]
  - Squamous cell carcinoma [Unknown]
  - Feeling abnormal [Unknown]

NARRATIVE: CASE EVENT DATE: 2014
